FAERS Safety Report 9775474 (Version 2)
Quarter: 2014Q1

REPORT INFORMATION
  Report Type: Spontaneous
  Country: US (occurrence: US)
  Receive Date: 20131220
  Receipt Date: 20140318
  Transmission Date: 20141002
  Serious: No
  Sender: FDA-Public Use
  Company Number: US-GALDERMA-US13003450

PATIENT
  Age: 53 Year
  Sex: Male

DRUGS (6)
  1. MIRVASO (BRIMONIDINE) TOPICAL GEL, 0.33% [Suspect]
     Indication: ROSACEA
     Route: 061
     Dates: start: 20130928, end: 20131029
  2. SOLODYN ER [Concomitant]
     Indication: ROSACEA
     Route: 048
  3. FLONASE [Concomitant]
     Indication: MULTIPLE ALLERGIES
     Dates: start: 2008
  4. PHYSICIAN MADE FACE WASH FOR OILY, ACNE PRONE SKIN [Concomitant]
     Indication: THERAPEUTIC SKIN CARE TOPICAL
     Route: 061
  5. ALLEGRA [Concomitant]
     Indication: MULTIPLE ALLERGIES
     Route: 048
  6. SYNTHROID [Concomitant]
     Indication: THYROID DISORDER
     Route: 048
     Dates: start: 1998

REACTIONS (2)
  - Rash macular [Recovered/Resolved]
  - Rebound effect [Recovered/Resolved]
